FAERS Safety Report 4488356-5 (Version None)
Quarter: 2004Q4

REPORT INFORMATION
  Report Type: 
  Country: None (occurrence: None)
  Receive Date: 20041026
  Receipt Date: 20041013
  Transmission Date: 20050328
  Serious: Yes (Other)
  Sender: FDA-Public Use
  Company Number: 200419113BWH

PATIENT
  Age: 67 Year
  Sex: Male
  Weight: 99.7913 kg

DRUGS (7)
  1. LEVITRA [Suspect]
     Indication: ERECTILE DYSFUNCTION
     Dosage: 10 MG , TOTAL DAILY, ORAL
     Route: 048
     Dates: start: 20040706
  2. PINDOLOL [Concomitant]
  3. AZO [Concomitant]
  4. BP [Concomitant]
  5. QUININE [Concomitant]
  6. SAW PALMETA [Concomitant]
  7. MAXZIDE [Concomitant]

REACTIONS (15)
  - BAND NEUTROPHIL COUNT INCREASED [None]
  - BLOOD PRESSURE INCREASED [None]
  - CHILLS [None]
  - DRUG INEFFECTIVE [None]
  - HAEMATOCRIT DECREASED [None]
  - HAEMOGLOBIN DECREASED [None]
  - LYMPHOCYTE COUNT DECREASED [None]
  - NEUTROPHIL COUNT INCREASED [None]
  - PENILE DISCHARGE [None]
  - PROSTATITIS [None]
  - PYREXIA [None]
  - RED BLOOD CELL COUNT DECREASED [None]
  - RESPIRATORY RATE INCREASED [None]
  - URINARY RETENTION [None]
  - URINARY TRACT INFECTION [None]
